FAERS Safety Report 7944922-3 (Version None)
Quarter: 2011Q4

REPORT INFORMATION
  Report Type: 
  Country: None (occurrence: None)
  Receive Date: 20111129
  Receipt Date: 20111121
  Transmission Date: 20120403
  Serious: Yes (Hospitalization, Other)
  Sender: FDA-Public Use
  Company Number: PHHY2011DE62312

PATIENT
  Sex: Female
  Weight: 68 kg

DRUGS (6)
  1. CALCIUM [Concomitant]
     Indication: OSTEOPOROSIS
     Dosage: 1000 MG, DAILY
  2. FORTEO [Concomitant]
     Indication: OSTEOPOROSIS
     Dosage: UNK UKN, UNK
  3. VITAMIN D [Concomitant]
     Indication: OSTEOPOROSIS
     Dosage: 3000 IU, DAILY
  4. DICLOFENAC SODIUM [Concomitant]
     Indication: PAIN
     Dosage: 2 DF, QD
  5. ZOLEDRONOC ACID [Suspect]
     Dosage: 5 MG ONCE YEARLY
     Route: 042
     Dates: start: 20100322
  6. CORTISONE ACETATE [Concomitant]
     Indication: ASTHMA
     Dosage: 15 MG
     Route: 048
     Dates: start: 20000201

REACTIONS (3)
  - DRUG EFFECT DECREASED [None]
  - LUMBAR VERTEBRAL FRACTURE [None]
  - CONDITION AGGRAVATED [None]
